FAERS Safety Report 18383682 (Version 3)
Quarter: 2020Q4

REPORT INFORMATION
  Report Type: Spontaneous
  Country: US (occurrence: US)
  Receive Date: 20201014
  Receipt Date: 20201026
  Transmission Date: 20210114
  Serious: Yes (Other)
  Sender: FDA-Public Use
  Company Number: US-PFIZER INC-2020395079

PATIENT
  Age: 68 Year
  Sex: Female
  Weight: 71.67 kg

DRUGS (2)
  1. PAXIL [PIROXICAM] [Concomitant]
     Active Substance: PIROXICAM
     Dosage: UNK
  2. IBRANCE [Suspect]
     Active Substance: PALBOCICLIB
     Indication: BREAST CANCER METASTATIC
     Dosage: 125 MG, CYCLIC (125MG 1 TABLET BY MOUTH FOR 3 WEEKS THEN OFF A WEEK.)
     Route: 048
     Dates: start: 202005

REACTIONS (3)
  - Gallbladder disorder [Unknown]
  - Abdominal pain [Unknown]
  - Gastrointestinal pain [Recovering/Resolving]

NARRATIVE: CASE EVENT DATE: 2020
